FAERS Safety Report 11290639 (Version 5)
Quarter: 2015Q4

REPORT INFORMATION
  Report Type: Report from Study
  Country: US (occurrence: US)
  Receive Date: 20150722
  Receipt Date: 20151229
  Transmission Date: 20160304
  Serious: Yes (Other)
  Sender: FDA-Public Use
  Company Number: PHEH2015US013047

PATIENT
  Sex: Female
  Weight: 88.89 kg

DRUGS (1)
  1. GILENYA [Suspect]
     Active Substance: FINGOLIMOD HYDROCHLORIDE
     Indication: MULTIPLE SCLEROSIS
     Dosage: 0.5 MG, QD
     Route: 048
     Dates: start: 20150427

REACTIONS (9)
  - Nasopharyngitis [Recovering/Resolving]
  - Treatment failure [Unknown]
  - Ejection fraction decreased [Unknown]
  - Flushing [Recovered/Resolved]
  - Upper respiratory tract infection [Recovering/Resolving]
  - Pain [Unknown]
  - Ear infection [Unknown]
  - Cough [Unknown]
  - Dyspnoea [Unknown]
